FAERS Safety Report 21904028 (Version 1)
Quarter: 2023Q1

REPORT INFORMATION
  Report Type: Spontaneous
  Country: US (occurrence: US)
  Receive Date: 20230124
  Receipt Date: 20230124
  Transmission Date: 20230417
  Serious: Yes (Other)
  Sender: FDA-Public Use
  Company Number: US-PFIZER INC-2020428961

PATIENT
  Age: 89 Year
  Sex: Male
  Weight: 71.67 kg

DRUGS (3)
  1. VYNDAMAX [Suspect]
     Active Substance: TAFAMIDIS
     Indication: Cardiac disorder
     Dosage: 4 DF, DAILY
  2. VYNDAMAX [Suspect]
     Active Substance: TAFAMIDIS
     Indication: Cardiac failure
     Dosage: 61 MG, 1X/DAY
     Dates: end: 20230115
  3. TORSEMIDE [Concomitant]
     Active Substance: TORSEMIDE
     Indication: Pleural effusion
     Dosage: UNK
     Dates: start: 202112

REACTIONS (3)
  - Ulcer haemorrhage [Unknown]
  - Asthenia [Unknown]
  - Accidental overdose [Unknown]

NARRATIVE: CASE EVENT DATE: 20230101
